FAERS Safety Report 9667071 (Version 1)
Quarter: 2013Q4

REPORT INFORMATION
  Report Type: Spontaneous
  Country: US (occurrence: US)
  Receive Date: 20131104
  Receipt Date: 20131104
  Transmission Date: 20140711
  Serious: No
  Sender: FDA-Public Use
  Company Number: US-BIOGENIDEC-2013BI089699

PATIENT
  Sex: 0

DRUGS (7)
  1. TECFIDERA [Suspect]
     Indication: MULTIPLE SCLEROSIS
     Route: 048
     Dates: start: 20130625
  2. BACLOFEN [Concomitant]
  3. MULTI 50+ [Concomitant]
  4. PAROXETINE [Concomitant]
  5. WARFARIN [Concomitant]
  6. PAXIL [Concomitant]
  7. AVONEX [Concomitant]

REACTIONS (4)
  - Flatulence [Not Recovered/Not Resolved]
  - Abdominal distension [Not Recovered/Not Resolved]
  - Abdominal pain [Not Recovered/Not Resolved]
  - Flushing [Not Recovered/Not Resolved]
